FAERS Safety Report 5391401-6 (Version None)
Quarter: 2007Q3

REPORT INFORMATION
  Report Type: 
  Country: None (occurrence: None)
  Receive Date: 20070719
  Receipt Date: 20070710
  Transmission Date: 20080115
  Serious: Yes (Hospitalization)
  Sender: FDA-Public Use
  Company Number: GB-MERCK-0610GBR00065B1

PATIENT
  Sex: Male
  Weight: 3 kg

DRUGS (1)
  1. CLINORIL [Suspect]
     Indication: POLYHYDRAMNIOS
     Route: 064

REACTIONS (2)
  - NEONATAL RESPIRATORY DEPRESSION [None]
  - PULSE WAVEFORM ABNORMAL [None]
